FAERS Safety Report 15857212 (Version 1)
Quarter: 2018Q4

REPORT INFORMATION
  Report Type: Spontaneous
  Country: US (occurrence: US)
  Receive Date: 20181228
  Receipt Date: 20181228
  Transmission Date: 20190205
  Serious: Yes (Hospitalization)
  Sender: FDA-Public Use
  Company Number: None

PATIENT
  Age: 71 Year
  Sex: Male
  Weight: 84 kg

DRUGS (3)
  1. LENALIDOMIDE [Suspect]
     Active Substance: LENALIDOMIDE
     Dates: start: 20181224
  2. DEXAMETHASONE. [Suspect]
     Active Substance: DEXAMETHASONE
     Dates: start: 20181224
  3. VELCADE [Suspect]
     Active Substance: BORTEZOMIB
     Dates: start: 20181224

REACTIONS (5)
  - Infection [None]
  - Pyrexia [None]
  - Oropharyngeal pain [None]
  - Tachycardia [None]
  - Animal scratch [None]

NARRATIVE: CASE EVENT DATE: 20181225
